FAERS Safety Report 10540922 (Version 1)
Quarter: 2014Q4

REPORT INFORMATION
  Report Type: Spontaneous
  Country: US (occurrence: US)
  Receive Date: 20141024
  Receipt Date: 20141024
  Transmission Date: 20150529
  Serious: Yes (Other)
  Sender: FDA-Public Use
  Company Number: US-JNJCP-30000244982

PATIENT
  Sex: Female

DRUGS (6)
  1. AVEENO UNSPECIFIED BODY WASH - CONSUMER REFUSED [Concomitant]
  2. ULTRA CALMING DAILY MOISTURIZER SPF 15 [Concomitant]
  3. AVEENO CLEAR COMPLEXION DAILY MOISTURIZER [Suspect]
     Active Substance: SALICYLIC ACID
     Indication: DRY SKIN PROPHYLAXIS
     Route: 061
  4. AVEENO [Suspect]
     Active Substance: DIMETHICONE\HOMOSALATE\OCTINOXATE\OCTISALATE\TITANIUM DIOXIDE
     Indication: DRY SKIN PROPHYLAXIS
     Route: 061
  5. AVEENO UNSPECIFIED OTHER PRODUCTS - CONSUMER REFUSED [Concomitant]
  6. AVEENO CLEAR COMPLEXION DAILY MOISTURIZER [Suspect]
     Active Substance: SALICYLIC ACID
     Indication: DRY SKIN PROPHYLAXIS
     Route: 061

REACTIONS (1)
  - Breast cancer [Unknown]
